FAERS Safety Report 6319966-8 (Version None)
Quarter: 2009Q3

REPORT INFORMATION
  Report Type: 
  Country: None (occurrence: None)
  Receive Date: 20090822
  Receipt Date: 20081010
  Transmission Date: 20100115
  Serious: No
  Sender: FDA-Public Use
  Company Number: US-ABBOTT-08P-163-0481386-00

PATIENT
  Sex: Male
  Weight: 71.732 kg

DRUGS (4)
  1. NIASPAN [Suspect]
     Indication: CORONARY ARTERIAL STENT INSERTION
     Dosage: 500 MG AT BED TIME
     Route: 048
     Dates: start: 20080901
  2. NIASPAN [Suspect]
     Indication: CORONARY ARTERY OCCLUSION
  3. ASPIRIN [Concomitant]
     Indication: DRUG USE FOR UNKNOWN INDICATION
  4. UNKNOWN BLOOD PRESSURE MEDICATION [Concomitant]
     Indication: HYPERTENSION

REACTIONS (2)
  - FEELING HOT [None]
  - PARAESTHESIA [None]
